FAERS Safety Report 5903904-3 (Version None)
Quarter: 2008Q3

REPORT INFORMATION
  Report Type: 
  Country: None (occurrence: None)
  Receive Date: 20080919
  Receipt Date: 20080611
  Transmission Date: 20090109
  Serious: No
  Sender: FDA-Public Use
  Company Number: US-WYE-H04516208

PATIENT
  Age: 23 Year
  Sex: Female
  Weight: 66.28 kg

DRUGS (3)
  1. PRISTIQ [Suspect]
     Indication: ANXIETY
     Dosage: 50 MG 1X PER 1 DAY, ORAL
     Route: 048
     Dates: start: 20080529
  2. KLONOPIN [Suspect]
     Indication: ANXIETY
     Dosage: 0.25 MG 2X PER 1 DAY ; 0.5 MG 2X PER 1 DAY
     Dates: start: 20080529, end: 20080601
  3. KLONOPIN [Suspect]
     Indication: ANXIETY
     Dosage: 0.25 MG 2X PER 1 DAY ; 0.5 MG 2X PER 1 DAY
     Dates: start: 20080601

REACTIONS (3)
  - FATIGUE [None]
  - SOMNOLENCE [None]
  - YAWNING [None]
